FAERS Safety Report 8463727-0 (Version None)
Quarter: 2012Q2

REPORT INFORMATION
  Report Type: 
  Country: None (occurrence: None)
  Receive Date: 20120625
  Receipt Date: 20120619
  Transmission Date: 20120825
  Serious: Yes (Other)
  Sender: FDA-Public Use
  Company Number: PHHY2012MX049323

PATIENT
  Sex: Female

DRUGS (6)
  1. ZOLEDRONOC ACID [Suspect]
     Dosage: 5 MG/100 ML ONCE A YEAR
     Route: 042
     Dates: start: 20120618
  2. LALMETEC [Concomitant]
     Dosage: UNK UKN, UNK
     Dates: start: 20100101
  3. MESALAMINE [Concomitant]
     Dosage: 2 DF DAILY
     Route: 048
     Dates: start: 20100601
  4. ZOLEDRONOC ACID [Suspect]
     Indication: OSTEOPOROSIS
     Dosage: 5 MG/100ML
     Route: 042
     Dates: start: 20110601
  5. IMURAN [Concomitant]
     Dosage: 1 DF, DAILY
     Dates: start: 20110601
  6. DEXLANSOPRAZOLE [Concomitant]
     Dosage: 2 DF, DAILY
     Dates: start: 20120301

REACTIONS (8)
  - OEDEMA PERIPHERAL [None]
  - THIRST [None]
  - VIRAL INFECTION [None]
  - HEADACHE [None]
  - WRONG TECHNIQUE IN DRUG USAGE PROCESS [None]
  - MUSCULOSKELETAL STIFFNESS [None]
  - PAIN [None]
  - VISION BLURRED [None]
